FAERS Safety Report 6709243-5 (Version None)
Quarter: 2010Q2

REPORT INFORMATION
  Report Type: 
  Country: None (occurrence: None)
  Receive Date: 20100503
  Receipt Date: 20100503
  Transmission Date: 20101027
  Serious: Yes (Hospitalization, Other)
  Sender: FDA-Public Use
  Company Number: None

PATIENT
  Age: 71 Year
  Sex: Male
  Weight: 79.3795 kg

DRUGS (1)
  1. LITHIUM CARBONATE [Suspect]
     Dosage: 1200/900 ALTERNATING 900 DAILY
     Dates: start: 19710101

REACTIONS (3)
  - BALANCE DISORDER [None]
  - FALL [None]
  - THERAPEUTIC AGENT TOXICITY [None]
